FAERS Safety Report 18875106 (Version 1)
Quarter: 2021Q1

REPORT INFORMATION
  Report Type: Spontaneous
  Country: PL (occurrence: PL)
  Receive Date: 20210210
  Receipt Date: 20210210
  Transmission Date: 20210420
  Serious: Yes (Hospitalization, Congenital Anomaly, Other)
  Sender: FDA-Public Use
  Company Number: PL-GLAXOSMITHKLINE-PL2021EME028538

PATIENT
  Sex: Female
  Weight: 1.6 kg

DRUGS (4)
  1. SALBUTAMOL [Suspect]
     Active Substance: ALBUTEROL
     Indication: ENDOCARDIAL FIBROELASTOSIS
     Dosage: UNK
     Route: 064
  2. PLAQUENIL [Suspect]
     Active Substance: HYDROXYCHLOROQUINE SULFATE
     Indication: SJOGREN^S SYNDROME
     Dosage: UNK
     Route: 064
  3. DEXAMETHASONE. [Suspect]
     Active Substance: DEXAMETHASONE
     Indication: HEART BLOCK CONGENITAL
     Dosage: UNK
     Route: 064
  4. SALBUTAMOL [Suspect]
     Active Substance: ALBUTEROL
     Indication: CARDIOMEGALY

REACTIONS (7)
  - Foetal exposure during pregnancy [Unknown]
  - Ductus venosus agenesis [Unknown]
  - Tricuspid valve incompetence [Unknown]
  - Foetal growth restriction [Unknown]
  - Premature baby [Unknown]
  - Respiratory distress [Unknown]
  - Hypothermia [Unknown]
